FAERS Safety Report 23992655 (Version 5)
Quarter: 2024Q4

REPORT INFORMATION
  Report Type: Report from Study
  Country: US (occurrence: US)
  Receive Date: 20240620
  Receipt Date: 20241224
  Transmission Date: 20250115
  Serious: Yes (Hospitalization, Other)
  Sender: SANDOZ
  Company Number: US-NOVPHSZ-PHEH2019US035985

PATIENT
  Age: 53 Year
  Sex: Female
  Weight: 64.853 kg

DRUGS (50)
  1. OPSUMIT [Suspect]
     Active Substance: MACITENTAN
     Indication: Pulmonary arterial hypertension
     Dosage: UNK
     Route: 065
  2. TREPROSTINIL [Suspect]
     Active Substance: TREPROSTINIL
     Dosage: 87NG/KG/MIN, CONT
     Route: 042
     Dates: start: 20190730
  3. TREPROSTINIL [Suspect]
     Active Substance: TREPROSTINIL
     Dosage: 66 NG/KG/MIN, CONT
     Route: 042
     Dates: start: 20190730
  4. TREPROSTINIL [Suspect]
     Active Substance: TREPROSTINIL
     Dosage: 75 NG/KG/MIN, CONT
     Route: 042
  5. TREPROSTINIL [Suspect]
     Active Substance: TREPROSTINIL
     Dosage: 75 NG/KG/MIN, CONT
     Route: 042
  6. TREPROSTINIL [Suspect]
     Active Substance: TREPROSTINIL
     Dosage: 75 NG/KG/MIN, CONT
     Route: 042
  7. TREPROSTINIL [Suspect]
     Active Substance: TREPROSTINIL
     Dosage: 75NG/KG/MIN, CONT
     Route: 042
     Dates: start: 20180525
  8. TREPROSTINIL [Suspect]
     Active Substance: TREPROSTINIL
     Dosage: 79 NG/KG/MIN, CONT
     Route: 042
  9. TREPROSTINIL [Suspect]
     Active Substance: TREPROSTINIL
     Dosage: 87NG/KG/MIN, CONT
     Route: 042
     Dates: start: 20190730
  10. TREPROSTINIL [Suspect]
     Active Substance: TREPROSTINIL
     Dosage: 87NG/KG/MIN, CONT
     Route: 042
     Dates: start: 20190730
  11. TREPROSTINIL [Suspect]
     Active Substance: TREPROSTINIL
     Dosage: 87NG/KG/MIN, CONT
     Route: 042
     Dates: start: 20190730
  12. TREPROSTINIL [Suspect]
     Active Substance: TREPROSTINIL
     Dosage: 74 NG/KG/MIN, CONT
     Route: 042
  13. TREPROSTINIL [Suspect]
     Active Substance: TREPROSTINIL
     Indication: Pulmonary arterial hypertension
     Dosage: 75 NG/KG/MIN, CONT
     Route: 042
     Dates: start: 20180525
  14. ADCIRCA [Concomitant]
     Active Substance: TADALAFIL
     Indication: Pulmonary arterial hypertension
     Dosage: UNK
     Route: 065
  15. ALBUTEROL SULFATE [Concomitant]
     Active Substance: ALBUTEROL SULFATE
     Indication: Product used for unknown indication
     Dosage: UNK
     Route: 065
  16. AMBRISENTAN [Concomitant]
     Active Substance: AMBRISENTAN
     Indication: Product used for unknown indication
     Dosage: UNK
     Route: 065
  17. ASPIRIN [Concomitant]
     Active Substance: ASPIRIN
     Indication: Product used for unknown indication
     Dosage: UNK
     Route: 065
  18. ATENOLOL [Concomitant]
     Active Substance: ATENOLOL
     Indication: Product used for unknown indication
     Dosage: UNK
     Route: 065
  19. BENZONATATE [Concomitant]
     Active Substance: BENZONATATE
     Indication: Product used for unknown indication
     Dosage: UNK
     Route: 065
  20. BUMETANIDE [Concomitant]
     Active Substance: BUMETANIDE
     Indication: Product used for unknown indication
     Dosage: UNK
     Route: 065
  21. CALTRATE [Concomitant]
     Active Substance: CALCIUM CARBONATE
     Indication: Product used for unknown indication
     Dosage: UNK
     Route: 065
  22. CHLORPHENIRAMINE\HYDROCODONE [Concomitant]
     Active Substance: CHLORPHENIRAMINE\HYDROCODONE
     Indication: Product used for unknown indication
     Dosage: UNK
     Route: 065
  23. COENZYME Q10 [Concomitant]
     Active Substance: DIETARY SUPPLEMENT\UBIDECARENONE
     Indication: Product used for unknown indication
     Dosage: UNK
     Route: 065
  24. DIGOXIN [Concomitant]
     Active Substance: DIGOXIN
     Indication: Product used for unknown indication
     Dosage: UNK
     Route: 065
  25. DOCUSATE SODIUM [Concomitant]
     Active Substance: DOCUSATE SODIUM
     Indication: Product used for unknown indication
     Dosage: UNK
     Route: 065
  26. ELIQUIS [Concomitant]
     Active Substance: APIXABAN
     Indication: Pulmonary arterial hypertension
     Dosage: UNK
     Route: 065
  27. FERROUS SULFATE [Concomitant]
     Active Substance: FERROUS SULFATE
     Indication: Product used for unknown indication
     Dosage: UNK
     Route: 065
  28. FLAXSEED [Concomitant]
     Active Substance: FLAX SEED
     Indication: Product used for unknown indication
     Dosage: UNK
     Route: 065
  29. FLUTICASONE PROPIONATE [Concomitant]
     Active Substance: FLUTICASONE PROPIONATE
     Indication: Product used for unknown indication
     Dosage: UNK
     Route: 065
  30. HEPARIN [Concomitant]
     Active Substance: HEPARIN SODIUM
     Indication: Product used for unknown indication
     Dosage: UNK
     Route: 065
  31. HYDROXYCHLOROQUINE SULFATE [Concomitant]
     Active Substance: HYDROXYCHLOROQUINE SULFATE
     Indication: Product used for unknown indication
     Dosage: UNK
     Route: 065
  32. LETAIRIS [Concomitant]
     Active Substance: AMBRISENTAN
     Indication: Pulmonary arterial hypertension
     Dosage: UNK
     Route: 065
  33. LYRICA [Concomitant]
     Active Substance: PREGABALIN
     Indication: Product used for unknown indication
     Dosage: UNK
     Route: 065
  34. MAGNESIUM [Concomitant]
     Active Substance: MAGNESIUM
     Indication: Product used for unknown indication
     Dosage: UNK
     Route: 065
  35. METFORMIN HYDROCHLORIDE [Concomitant]
     Active Substance: METFORMIN HYDROCHLORIDE
     Indication: Product used for unknown indication
     Dosage: UNK
     Route: 065
  36. METHIMAZOLE [Concomitant]
     Active Substance: METHIMAZOLE
     Indication: Product used for unknown indication
     Dosage: UNK
     Route: 065
  37. METOPROLOL TARTRATE [Concomitant]
     Active Substance: METOPROLOL TARTRATE
     Indication: Product used for unknown indication
     Dosage: UNK
     Route: 065
  38. MONTELUKAST SODIUM [Concomitant]
     Active Substance: MONTELUKAST\MONTELUKAST SODIUM
     Indication: Product used for unknown indication
     Dosage: UNK
     Route: 065
  39. NOVOLOG [Concomitant]
     Active Substance: INSULIN ASPART
     Indication: Product used for unknown indication
     Dosage: UNK
     Route: 065
  40. OXYGEN [Concomitant]
     Active Substance: OXYGEN
     Indication: Product used for unknown indication
     Dosage: UNK
     Route: 065
  41. POTASSIUM CHLORIDE [Concomitant]
     Active Substance: POTASSIUM CHLORIDE
     Indication: Product used for unknown indication
     Dosage: UNK
     Route: 065
  42. RANITIDINE [Concomitant]
     Active Substance: RANITIDINE
     Indication: Product used for unknown indication
     Dosage: UNK
     Route: 065
  43. REMODULIN [Concomitant]
     Active Substance: TREPROSTINIL
     Indication: Product used for unknown indication
     Dosage: UNK
     Route: 065
  44. SODIUM CHLORIDE [Concomitant]
     Active Substance: SODIUM CHLORIDE
     Indication: Product used for unknown indication
     Dosage: UNK
     Route: 065
  45. TADALAFIL [Concomitant]
     Active Substance: TADALAFIL
     Indication: Pulmonary arterial hypertension
     Dosage: UNK
     Route: 065
  46. TRIAMCINOLONE [Concomitant]
     Active Substance: TRIAMCINOLONE
     Indication: Product used for unknown indication
     Dosage: UNK
     Route: 065
  47. TYLENOL EXTRA STRENGTH [Concomitant]
     Active Substance: ACETAMINOPHEN
     Indication: Product used for unknown indication
     Dosage: UNK
     Route: 065
  48. VITAMIN D2 [Concomitant]
     Active Substance: ERGOCALCIFEROL
     Indication: Product used for unknown indication
     Dosage: 1.25 MG
     Route: 065
  49. WINREVAIR [Concomitant]
     Active Substance: SOTATERCEPT-CSRK
     Indication: Product used for unknown indication
     Dosage: UNK
     Route: 065
  50. ZYRTEC [Concomitant]
     Active Substance: CETIRIZINE HYDROCHLORIDE
     Indication: Product used for unknown indication
     Dosage: UNK
     Route: 065

REACTIONS (34)
  - Internal haemorrhage [Unknown]
  - Haematochezia [Unknown]
  - Type 1 diabetes mellitus [Not Recovered/Not Resolved]
  - Blood glucose increased [Unknown]
  - Pollakiuria [Unknown]
  - Thirst [Unknown]
  - Fatigue [Not Recovered/Not Resolved]
  - Sarcoidosis [Unknown]
  - Sinusitis [Unknown]
  - Infection [Unknown]
  - Nasal congestion [Unknown]
  - Malaise [Unknown]
  - Feeling abnormal [Unknown]
  - Scratch [Unknown]
  - Cough [Unknown]
  - COVID-19 [Recovered/Resolved]
  - Chills [Unknown]
  - Arthropod bite [Unknown]
  - Hypersensitivity [Unknown]
  - Rhinorrhoea [Unknown]
  - Eye pruritus [Unknown]
  - Device leakage [Recovered/Resolved]
  - Skin haemorrhage [Recovered/Resolved]
  - Dry skin [Recovered/Resolved]
  - Pruritus [Recovered/Resolved]
  - Rash [Not Recovered/Not Resolved]
  - Dyspnoea [Unknown]
  - Vomiting [Unknown]
  - Diarrhoea [Unknown]
  - Catheter site haemorrhage [Unknown]
  - Catheter site rash [Recovered/Resolved]
  - Infusion site discharge [Unknown]
  - Infusion site haemorrhage [Recovered/Resolved]
  - Headache [Unknown]

NARRATIVE: CASE EVENT DATE: 20191025
